FAERS Safety Report 6572033-0 (Version None)
Quarter: 2010Q1

REPORT INFORMATION
  Report Type: 
  Country: None (occurrence: None)
  Receive Date: 20100205
  Receipt Date: 20100125
  Transmission Date: 20100710
  Serious: Yes (Hospitalization)
  Sender: FDA-Public Use
  Company Number: BE-CELGENEUS-013-C5013-10010119

PATIENT
  Sex: Male
  Weight: 93 kg

DRUGS (11)
  1. CC-5013 [Suspect]
     Indication: MULTIPLE MYELOMA
     Route: 048
     Dates: start: 20100125
  2. CC-5013 [Suspect]
     Route: 048
     Dates: start: 20091217, end: 20100101
  3. CC-5013 [Suspect]
     Route: 048
     Dates: start: 20091110
  4. LISINOPRIL [Concomitant]
     Indication: ATRIAL FIBRILLATION
     Route: 048
  5. ACYCLOVIR [Concomitant]
     Indication: PROPHYLAXIS
     Route: 048
     Dates: end: 20100101
  6. CLONAZEPAM [Concomitant]
     Route: 048
  7. ESCITALOPRAM [Concomitant]
     Indication: DEPRESSION
     Route: 048
  8. NADROPARIN [Concomitant]
     Route: 058
     Dates: start: 20091210, end: 20100106
  9. FENTANYL [Concomitant]
     Indication: PAIN
     Route: 062
  10. MORPHINE [Concomitant]
     Indication: PAIN
     Route: 048
  11. AMIODARONE HCL [Concomitant]
     Indication: ATRIAL FIBRILLATION
     Route: 048
     Dates: start: 20081001

REACTIONS (1)
  - LUNG DISORDER [None]
